FAERS Safety Report 13143404 (Version 3)
Quarter: 2017Q2

REPORT INFORMATION
  Report Type: Spontaneous
  Country: US (occurrence: US)
  Receive Date: 20170123
  Receipt Date: 20170614
  Transmission Date: 20170830
  Serious: Yes (Death, Other)
  Sender: FDA-Public Use
  Company Number: US-009507513-1701USA009647

PATIENT
  Age: 81 Year
  Sex: Female

DRUGS (4)
  1. DEXAMETHASONE. [Suspect]
     Active Substance: DEXAMETHASONE
     Indication: MOUTH ULCERATION
     Dosage: 0.5 MG (10 ML 2 TEASPOONS (TPS), 4 TIMES A DAY AFTER EACH MEAL AND BEFORE BEDTIME
     Dates: start: 201509
  2. DEXAMETHASONE. [Suspect]
     Active Substance: DEXAMETHASONE
     Indication: TONGUE ULCERATION
  3. MISOPROSTOL. [Suspect]
     Active Substance: MISOPROSTOL
     Indication: TONGUE ULCERATION
  4. MISOPROSTOL. [Suspect]
     Active Substance: MISOPROSTOL
     Indication: MOUTH ULCERATION
     Dosage: 1 - 2 TABLESPOONS EVERY 2 HOURS, USE FOR 2-3 MINUTES, THEN SPIT OUT AND DO NOT SWALLOW
     Dates: start: 201509

REACTIONS (2)
  - Drug effect incomplete [Not Recovered/Not Resolved]
  - Death [Fatal]

NARRATIVE: CASE EVENT DATE: 20170428
